FAERS Safety Report 4976622-6 (Version None)
Quarter: 2006Q2

REPORT INFORMATION
  Report Type: 
  Country: None (occurrence: None)
  Receive Date: 20060419
  Receipt Date: 20060407
  Transmission Date: 20061013
  Serious: Yes (Other)
  Sender: FDA-Public Use
  Company Number: CZ-BRISTOL-MYERS SQUIBB COMPANY-13343736

PATIENT
  Age: 24 Year
  Sex: Male

DRUGS (2)
  1. ABILIFY [Suspect]
     Indication: SCHIZOPHRENIA, PARANOID TYPE
     Dates: start: 20050628, end: 20060124
  2. RIVOTRIL [Concomitant]

REACTIONS (5)
  - BRUXISM [None]
  - DYSKINESIA [None]
  - FACIAL SPASM [None]
  - GINGIVAL BLEEDING [None]
  - PERIOSTITIS [None]
